FAERS Safety Report 19514053 (Version 1)
Quarter: 2021Q3

REPORT INFORMATION
  Report Type: Spontaneous
  Country: BE (occurrence: BE)
  Receive Date: 20210709
  Receipt Date: 20210709
  Transmission Date: 20211014
  Serious: Yes (Hospitalization)
  Sender: FDA-Public Use
  Company Number: BE-MYLANLABS-2021M1040614

PATIENT
  Age: 6 Year
  Sex: Male

DRUGS (3)
  1. VALPROIC ACID. [Suspect]
     Active Substance: VALPROIC ACID
     Indication: PARTIAL SEIZURES
     Dosage: UNK
     Route: 065
  2. LAMOTRIGINE. [Suspect]
     Active Substance: LAMOTRIGINE
     Indication: PARTIAL SEIZURES
     Dosage: UNK
     Route: 065
  3. CARBAMAZEPINE. [Suspect]
     Active Substance: CARBAMAZEPINE
     Indication: PARTIAL SEIZURES
     Dosage: UNK
     Route: 065

REACTIONS (1)
  - Drug ineffective [Unknown]
